FAERS Safety Report 25658210 (Version 1)
Quarter: 2025Q3

REPORT INFORMATION
  Report Type: Spontaneous
  Country: IN (occurrence: US)
  Receive Date: 20250808
  Receipt Date: 20250808
  Transmission Date: 20251020
  Serious: Yes (Hospitalization, Other)
  Sender: ASTELLAS
  Company Number: IN-ASTELLAS-2025-AER-042062

PATIENT
  Age: 60 Year
  Sex: Male

DRUGS (2)
  1. TACROLIMUS [Suspect]
     Active Substance: TACROLIMUS
     Indication: Renal transplant
     Route: 065
  2. PREDNISONE [Concomitant]
     Active Substance: PREDNISONE
     Indication: Renal transplant
     Route: 065

REACTIONS (5)
  - Abscess soft tissue [Recovering/Resolving]
  - Osteomyelitis [Recovering/Resolving]
  - Nocardiosis [Recovering/Resolving]
  - Pneumonia aspiration [Recovering/Resolving]
  - Nosocomial infection [Recovering/Resolving]
